FAERS Safety Report 19893723 (Version 1)
Quarter: 2021Q3

REPORT INFORMATION
  Report Type: Spontaneous
  Country: US (occurrence: US)
  Receive Date: 20210928
  Receipt Date: 20210928
  Transmission Date: 20211014
  Serious: No
  Sender: FDA-Public Use
  Company Number: US-MYLANLABS-2021M1064950

PATIENT
  Sex: Female
  Weight: 61 kg

DRUGS (1)
  1. WIXELA INHUB [Suspect]
     Active Substance: FLUTICASONE PROPIONATE\SALMETEROL XINAFOATE
     Indication: ASTHMA
     Dosage: 1 INHALATION ONCE PER DAY(100/50 MICROGRAM QD)
     Route: 055
     Dates: start: 20210621, end: 20210918

REACTIONS (3)
  - Device issue [Not Recovered/Not Resolved]
  - Malaise [Unknown]
  - Off label use [Not Recovered/Not Resolved]
